FAERS Safety Report 8880996 (Version 3)
Quarter: 2013Q1

REPORT INFORMATION
  Report Type: Spontaneous
  Country: JP (occurrence: JP)
  Receive Date: 20121101
  Receipt Date: 20130306
  Transmission Date: 20140127
  Serious: Yes (Hospitalization)
  Sender: FDA-Public Use
  Company Number: JP-PFIZER INC-JP-WYE-H18312910

PATIENT
  Age: 46 Year
  Sex: Male
  Weight: 66 kg

DRUGS (7)
  1. ANCARON [Suspect]
     Indication: VENTRICULAR TACHYCARDIA
     Dosage: 100 MG, 2X/DAY
     Route: 048
     Dates: start: 20070228, end: 20101020
  2. RISPERIDONE [Concomitant]
     Dosage: UNK
  3. SELENICA-R [Concomitant]
     Dosage: UNK
  4. DEPAS [Concomitant]
     Dosage: UNK
  5. CONTOMIN [Concomitant]
     Dosage: UNK
     Dates: end: 20101110
  6. PYRETHIA [Concomitant]
     Dosage: UNK
     Dates: end: 20101110
  7. AKINETON [Concomitant]
     Dosage: UNK
     Dates: end: 20101110

REACTIONS (3)
  - Hyperthyroidism [Recovered/Resolved]
  - Mental status changes [Recovering/Resolving]
  - Delirium [Recovering/Resolving]
